FAERS Safety Report 8581975-6 (Version None)
Quarter: 2012Q3

REPORT INFORMATION
  Report Type: 
  Country: None (occurrence: None)
  Receive Date: 20120809
  Receipt Date: 20120731
  Transmission Date: 20120928
  Serious: Yes (Hospitalization)
  Sender: FDA-Public Use
  Company Number: US-BAYER-2012-077389

PATIENT
  Age: 55 Year
  Sex: Male

DRUGS (7)
  1. NEXAVAR [Suspect]
     Indication: LIVER DISORDER
     Dosage: 400 MG, BID
     Route: 048
  2. NEXAVAR [Suspect]
     Dosage: 400 MG, BID
     Route: 048
     Dates: start: 20120718
  3. MEGASE [Concomitant]
     Route: 048
  4. DIURETICS [Concomitant]
  5. CHEMOTHERAPEUTICS NOS [Concomitant]
     Route: 042
  6. MEGASE [Concomitant]
  7. PROTEINS NOS [Concomitant]
     Route: 048

REACTIONS (3)
  - WHITE BLOOD CELL COUNT DECREASED [None]
  - URINARY TRACT INFECTION [None]
  - HAEMOGLOBIN DECREASED [None]
